FAERS Safety Report 5330287-2 (Version None)
Quarter: 2007Q2

REPORT INFORMATION
  Report Type: 
  Country: None (occurrence: None)
  Receive Date: 20070227
  Receipt Date: 20060922
  Transmission Date: 20071010
  Serious: Yes (Other)
  Sender: FDA-Public Use
  Company Number: 464788

PATIENT
  Age: 26 Year
  Sex: Male
  Weight: 72.6 kg

DRUGS (1)
  1. ACCUTANE [Suspect]
     Indication: ACNE
     Dosage: 40 MG DAILY ORAL
     Route: 048
     Dates: start: 20060824, end: 20060914

REACTIONS (3)
  - VISION BLURRED [None]
  - VISUAL ACUITY REDUCED [None]
  - VISUAL DISTURBANCE [None]
